FAERS Safety Report 7267158-0 (Version None)
Quarter: 2011Q1

REPORT INFORMATION
  Report Type: 
  Country: None (occurrence: None)
  Receive Date: 20110201
  Receipt Date: 20110125
  Transmission Date: 20110831
  Serious: Yes (Death, Hospitalization, Other)
  Sender: FDA-Public Use
  Company Number: US-ELI_LILLY_AND_COMPANY-US201012006580

PATIENT
  Age: 53 Year
  Sex: Male
  Weight: 94.5 kg

DRUGS (6)
  1. VITAMIN B-12 [Concomitant]
     Dosage: UNK, EVERY 9 WEEKS
     Route: 030
  2. CISPLATIN [Suspect]
     Indication: LUNG NEOPLASM MALIGNANT
     Dosage: 75 MG/M2, 3/W
     Route: 042
     Dates: start: 20101129
  3. FOLINIC ACID [Concomitant]
     Dosage: 1 MG, DAILY (1/D)
     Route: 048
  4. OXYGEN [Concomitant]
     Dosage: 2 LITER, UNK
  5. PEMETREXED [Suspect]
     Indication: LUNG NEOPLASM MALIGNANT
     Dosage: 500 MG/M2, 3/W
     Route: 042
     Dates: start: 20101129
  6. ANTIBIOTICS [Concomitant]
     Indication: BRONCHITIS
     Dates: start: 20101201

REACTIONS (13)
  - PLEURAL EFFUSION [None]
  - SEPSIS [None]
  - TACHYCARDIA [None]
  - ODYNOPHAGIA [None]
  - NEOPLASM MALIGNANT [None]
  - PULMONARY OEDEMA [None]
  - RESPIRATORY DISTRESS [None]
  - HYPERTENSION [None]
  - PERICARDIAL EFFUSION [None]
  - TACHYPNOEA [None]
  - CANDIDIASIS [None]
  - MULTI-ORGAN FAILURE [None]
  - DYSPHAGIA [None]
